FAERS Safety Report 18432157 (Version 2)
Quarter: 2020Q4

REPORT INFORMATION
  Report Type: Spontaneous
  Country: US (occurrence: US)
  Receive Date: 20201027
  Receipt Date: 20201105
  Transmission Date: 20210114
  Serious: No
  Sender: FDA-Public Use
  Company Number: US-BAUSCH-BL-2020-030518

PATIENT
  Age: 65 Year
  Sex: Female
  Weight: 54.48 kg

DRUGS (3)
  1. LUMIFY [Suspect]
     Active Substance: BRIMONIDINE TARTRATE
     Route: 047
     Dates: start: 20201016, end: 20201016
  2. LUMIFY [Suspect]
     Active Substance: BRIMONIDINE TARTRATE
     Indication: OCULAR HYPERAEMIA
     Dosage: ABOUT 6 MONTHS AGO, SAMPLES
     Route: 047
     Dates: start: 2020, end: 2020
  3. SINGULAIR [Concomitant]
     Active Substance: MONTELUKAST SODIUM
     Indication: PRODUCT USED FOR UNKNOWN INDICATION

REACTIONS (8)
  - Vision blurred [Recovering/Resolving]
  - Product quality issue [Unknown]
  - Suspected COVID-19 [Unknown]
  - Rhinalgia [Recovering/Resolving]
  - Sinus pain [Recovering/Resolving]
  - Dry mouth [Recovering/Resolving]
  - Oropharyngeal pain [Recovering/Resolving]
  - Photophobia [Recovering/Resolving]

NARRATIVE: CASE EVENT DATE: 202010
